FAERS Safety Report 13496292 (Version 2)
Quarter: 2017Q2

REPORT INFORMATION
  Report Type: Report from Study
  Country: CA (occurrence: CA)
  Receive Date: 20170428
  Receipt Date: 20170623
  Transmission Date: 20170830
  Serious: Yes (Hospitalization, Other)
  Sender: FDA-Public Use
  Company Number: CA-AMGEN-CANSL2017063150

PATIENT
  Age: 96 Year
  Sex: Female

DRUGS (11)
  1. PROLIA [Suspect]
     Active Substance: DENOSUMAB
     Indication: PRODUCT USED FOR UNKNOWN INDICATION
     Dosage: UNK
     Route: 065
     Dates: start: 20150916
  2. FUROSEMIDE. [Concomitant]
     Active Substance: FUROSEMIDE
     Dosage: 20 MG, UNK
  3. MICARDIS [Concomitant]
     Active Substance: TELMISARTAN
     Dosage: 20 MG, UNK
  4. VITAMIN D [Concomitant]
     Active Substance: CHOLECALCIFEROL
  5. LYRICA [Concomitant]
     Active Substance: PREGABALIN
     Dosage: 75 MG, QD
  6. LYRICA [Concomitant]
     Active Substance: PREGABALIN
     Dosage: 50 MG, QD
  7. CALCIUM [Concomitant]
     Active Substance: CALCIUM
  8. CELEXA [Concomitant]
     Active Substance: CITALOPRAM HYDROBROMIDE
     Dosage: 20 MG HS, UNK
  9. XARELTO [Concomitant]
     Active Substance: RIVAROXABAN
  10. IRON [Concomitant]
     Active Substance: IRON
  11. PANTOPRAZOLE [Concomitant]
     Active Substance: PANTOPRAZOLE
     Dosage: 40 MG, UNK

REACTIONS (5)
  - Pneumonia [Recovered/Resolved]
  - Confusional state [Unknown]
  - Cardiac failure congestive [Unknown]
  - Tibia fracture [Recovering/Resolving]
  - Fall [Unknown]

NARRATIVE: CASE EVENT DATE: 201610
